FAERS Safety Report 6966209-8 (Version None)
Quarter: 2010Q3

REPORT INFORMATION
  Report Type: 
  Country: None (occurrence: None)
  Receive Date: 20100901
  Receipt Date: 20100819
  Transmission Date: 20110219
  Serious: Yes (Hospitalization)
  Sender: FDA-Public Use
  Company Number: 2010-2885

PATIENT
  Age: 69 Year
  Sex: Male
  Weight: 80 kg

DRUGS (4)
  1. APOKYN [Suspect]
     Indication: PARKINSON'S DISEASE
     Dosage: 1.6 TO 2.0 ML/DAY (0.4 ML, 4 TO 5 TIMES A DAY) SUBCUTANEOUS
     Route: 058
     Dates: start: 20080101
  2. STALEVO (STALEVO) [Concomitant]
  3. ZELAPAR (SELEGILINE HYDROCHLORIDE) [Concomitant]
  4. REQUIP [Concomitant]

REACTIONS (3)
  - DRUG EFFECT DECREASED [None]
  - THERAPEUTIC RESPONSE DELAYED [None]
  - URINARY TRACT INFECTION [None]
